FAERS Safety Report 15190378 (Version 3)
Quarter: 2018Q4

REPORT INFORMATION
  Report Type: Spontaneous
  Country: US (occurrence: US)
  Receive Date: 20180724
  Receipt Date: 20181017
  Transmission Date: 20190204
  Serious: Yes (Other)
  Sender: FDA-Public Use
  Company Number: US-AKORN PHARMACEUTICALS-2018AKN01064

PATIENT
  Age: 20 Year
  Sex: Female

DRUGS (2)
  1. NORGESTREL; ETHINYL ESTRADIOL [Concomitant]
  2. MYORISAN [Suspect]
     Active Substance: ISOTRETINOIN
     Dosage: 20 MG, 1X/DAY
     Dates: start: 20180529, end: 201807

REACTIONS (4)
  - Abortion spontaneous [Recovered/Resolved]
  - Foetal heart rate abnormal [Not Recovered/Not Resolved]
  - Vaginal haemorrhage [Unknown]
  - Exposure during pregnancy [Recovered/Resolved]

NARRATIVE: CASE EVENT DATE: 2018
